FAERS Safety Report 9609762 (Version 1)
Quarter: 2013Q4

REPORT INFORMATION
  Report Type: Spontaneous
  Country: US (occurrence: None)
  Receive Date: 20131008
  Receipt Date: 20131008
  Transmission Date: 20140711
  Serious: Yes (Hospitalization)
  Sender: FDA-Public Use
  Company Number: None

PATIENT
  Age: 71 Year
  Sex: Female

DRUGS (6)
  1. ZOLEDRONIC ACID [Suspect]
     Indication: BREAST CANCER METASTATIC
  2. ANASTROZOLE [Concomitant]
  3. CALCIUM W/D [Concomitant]
  4. LOVASTATIN [Concomitant]
  5. NIACIN [Concomitant]
  6. POLYETHYLENE GLYCOL [Concomitant]

REACTIONS (4)
  - Presyncope [None]
  - Dizziness [None]
  - Nausea [None]
  - Chills [None]
